FAERS Safety Report 19082373 (Version 3)
Quarter: 2021Q2

REPORT INFORMATION
  Report Type: Report from Study
  Country: None (occurrence: US)
  Receive Date: 20210401
  Receipt Date: 20210607
  Transmission Date: 20210717
  Serious: Yes (Hospitalization)
  Sender: FDA-Public Use
  Company Number: US-ABBVIE-21K-163-3782867-00

PATIENT
  Sex: Male

DRUGS (2)
  1. HUMIRA [Suspect]
     Active Substance: ADALIMUMAB
     Indication: CROHN^S DISEASE
     Dosage: CITRATE FREE
     Route: 058
     Dates: end: 202004
  2. HUMIRA [Suspect]
     Active Substance: ADALIMUMAB
     Dosage: CITRATE FREE
     Route: 058

REACTIONS (9)
  - Injection site erythema [Not Recovered/Not Resolved]
  - Crohn^s disease [Recovering/Resolving]
  - Pain [Not Recovered/Not Resolved]
  - Arthralgia [Unknown]
  - Injection site haemorrhage [Not Recovered/Not Resolved]
  - Somnolence [Not Recovered/Not Resolved]
  - Hypersensitivity [Unknown]
  - Injection site pruritus [Not Recovered/Not Resolved]
  - Gait disturbance [Not Recovered/Not Resolved]
